APPROVED DRUG PRODUCT: SODIUM IODIDE I 123
Active Ingredient: SODIUM IODIDE I-123
Strength: 400uCi
Dosage Form/Route: CAPSULE;ORAL
Application: N018671 | Product #003
Applicant: CARDINAL HEALTH 418 INC
Approved: May 27, 1982 | RLD: No | RS: No | Type: DISCN